FAERS Safety Report 5490210-7 (Version None)
Quarter: 2007Q4

REPORT INFORMATION
  Report Type: 
  Country: None (occurrence: None)
  Receive Date: 20071018
  Receipt Date: 20071015
  Transmission Date: 20080405
  Serious: Yes (Disabling, Other)
  Sender: FDA-Public Use
  Company Number: US-MERCK-0707USA05056

PATIENT
  Age: 70 Year
  Sex: Female

DRUGS (6)
  1. FOSAMAX [Suspect]
     Indication: OSTEOPOROSIS
     Route: 048
     Dates: start: 20000101
  2. FOSAMAX [Suspect]
     Route: 048
     Dates: start: 20010614, end: 20030923
  3. FOSAMAX [Suspect]
     Route: 048
     Dates: start: 20040121, end: 20051126
  4. [THERAPY UNSPECIFIED] [Concomitant]
     Indication: HYPERTENSION
     Route: 065
  5. [THERAPY UNSPECIFIED] [Concomitant]
     Route: 065
  6. FOSAMAX PLUS D [Suspect]
     Indication: OSTEOPOROSIS
     Route: 048

REACTIONS (7)
  - ABSCESS ORAL [None]
  - DENTAL CARIES [None]
  - IMPAIRED HEALING [None]
  - INJURY [None]
  - JAW DISORDER [None]
  - OSTEOMYELITIS [None]
  - TOOTH LOSS [None]
